FAERS Safety Report 5963823-3 (Version None)
Quarter: 2008Q4

REPORT INFORMATION
  Report Type: 
  Country: None (occurrence: None)
  Receive Date: 20081124
  Receipt Date: 20081119
  Transmission Date: 20090506
  Serious: Yes (Life-Threatening, Hospitalization)
  Sender: FDA-Public Use
  Company Number: FR-WYE-G01902708

PATIENT
  Sex: Female

DRUGS (2)
  1. GEMTUZUMAB OZOGAMICIN [Suspect]
     Route: 042
     Dates: start: 20080620, end: 20080626
  2. MORPHINE [Suspect]
     Dosage: OVERDOSE AMOUNT: UNKNOWN

REACTIONS (3)
  - ACUTE RESPIRATORY DISTRESS SYNDROME [None]
  - ALTERED STATE OF CONSCIOUSNESS [None]
  - OVERDOSE [None]
